FAERS Safety Report 9871448 (Version 1)
Quarter: 2014Q1

REPORT INFORMATION
  Report Type: Spontaneous
  Country: US (occurrence: None)
  Receive Date: 20140204
  Receipt Date: 20140204
  Transmission Date: 20141002
  Serious: Yes (Other)
  Sender: FDA-Public Use
  Company Number: None

PATIENT
  Age: 26 Year
  Sex: Female
  Weight: 58.97 kg

DRUGS (1)
  1. FERRLECIT [Suspect]
     Indication: ANAEMIA
     Route: 042
     Dates: start: 20131218, end: 20140106

REACTIONS (4)
  - Palpitations [None]
  - Chest pain [None]
  - Nausea [None]
  - Vomiting [None]
